FAERS Safety Report 18207626 (Version 1)
Quarter: 2020Q3

REPORT INFORMATION
  Report Type: Spontaneous
  Country: US (occurrence: US)
  Receive Date: 20200828
  Receipt Date: 20200828
  Transmission Date: 20201103
  Serious: Yes (Hospitalization)
  Sender: FDA-Public Use
  Company Number: US-GLAXOSMITHKLINE-US2020170812

PATIENT
  Age: 81 Year
  Sex: Male

DRUGS (4)
  1. GAS?X [Suspect]
     Active Substance: DIMETHICONE
     Indication: FLATULENCE
     Dosage: UNK
  2. CITRUCEL CAPLETS [Suspect]
     Active Substance: METHYLCELLULOSES
     Indication: HAEMORRHOIDS
     Dosage: 3 DF, BID
  3. MIRALAX [Concomitant]
     Active Substance: POLYETHYLENE GLYCOL 3350
     Indication: BOWEL MOVEMENT IRREGULARITY
     Dosage: UNK
  4. CITRUCEL CAPLETS [Suspect]
     Active Substance: METHYLCELLULOSES
     Indication: BOWEL MOVEMENT IRREGULARITY
     Dosage: UNK, 2 AT A TIME EVERY 4 HOURS.

REACTIONS (7)
  - Flatulence [Recovering/Resolving]
  - Asthenia [Not Recovered/Not Resolved]
  - Therapeutic product effect incomplete [Unknown]
  - Pancreatic disorder [Recovering/Resolving]
  - Product use in unapproved indication [Unknown]
  - Chest discomfort [Recovering/Resolving]
  - Off label use [Unknown]

NARRATIVE: CASE EVENT DATE: 20200818
